FAERS Safety Report 7565639-3 (Version None)
Quarter: 2011Q2

REPORT INFORMATION
  Report Type: 
  Country: None (occurrence: None)
  Receive Date: 20110616
  Receipt Date: 20110602
  Transmission Date: 20111010
  Serious: Yes (Hospitalization)
  Sender: FDA-Public Use
  Company Number: 20110450

PATIENT
  Age: 7 Year
  Sex: Male

DRUGS (2)
  1. DEXAMETHASONE SODIUM POSPHATE [Suspect]
     Indication: DISEASE RECURRENCE
     Dosage: TAPERED DOSES FOR 5 MONTHS
  2. DEXAMETHASONE SODIUM POSPHATE [Suspect]
     Indication: EPENDYMOMA MALIGNANT
     Dosage: TAPERED DOSES FOR 5 MONTHS

REACTIONS (4)
  - CONVULSION [None]
  - HYPERTENSION [None]
  - TENDON RUPTURE [None]
  - NEUROLOGICAL DECOMPENSATION [None]
